FAERS Safety Report 5030441-3 (Version None)
Quarter: 2006Q2

REPORT INFORMATION
  Report Type: 
  Country: None (occurrence: None)
  Receive Date: 20060615
  Receipt Date: 20060605
  Transmission Date: 20061013
  Serious: Yes (Death, Hospitalization)
  Sender: FDA-Public Use
  Company Number: 2006-BP-06409RO

PATIENT
  Age: 60 Year
  Sex: Male

DRUGS (6)
  1. PREDNISONE TAB [Suspect]
     Indication: PROPHYLAXIS AGAINST TRANSPLANT REJECTION
     Dosage: 10 MG/DAY
  2. TACROLIMUS (TACROLIMUS) [Suspect]
     Indication: PROPHYLAXIS AGAINST TRANSPLANT REJECTION
     Dosage: 1 MG BID (1 MG)
  3. MYCOPHENOLATE MOFETIL [Suspect]
     Indication: PROPHYLAXIS AGAINST TRANSPLANT REJECTION
     Dosage: 500 MG BID (500  MG)
  4. CLOPIDOGREL [Concomitant]
  5. FUROSEMIDE [Concomitant]
  6. ITRACONAZOLE [Concomitant]

REACTIONS (16)
  - ACANTHAMOEBA INFECTION [None]
  - CEREBRAL INFARCTION [None]
  - COMPLICATIONS OF TRANSPLANTED LUNG [None]
  - CONVULSION [None]
  - CSF GLUCOSE INCREASED [None]
  - CSF LYMPHOCYTE COUNT ABNORMAL [None]
  - CSF NEUTROPHIL COUNT INCREASED [None]
  - CSF PROTEIN INCREASED [None]
  - CSF WHITE BLOOD CELL COUNT INCREASED [None]
  - GENERAL PHYSICAL HEALTH DETERIORATION [None]
  - LUNG INFILTRATION [None]
  - PLEURAL EFFUSION [None]
  - RESPIRATORY FAILURE [None]
  - SEPTIC SHOCK [None]
  - SKIN LESION [None]
  - SKIN NECROSIS [None]
